FAERS Safety Report 21693727 (Version 1)
Quarter: 2022Q4

REPORT INFORMATION
  Report Type: Spontaneous
  Country: US (occurrence: US)
  Receive Date: 20221207
  Receipt Date: 20221207
  Transmission Date: 20230113
  Serious: No
  Sender: FDA-Public Use
  Company Number: US-SA-SAC20221206000078

PATIENT
  Sex: Female

DRUGS (12)
  1. DUPIXENT [Suspect]
     Active Substance: DUPILUMAB
     Indication: Dermatitis atopic
     Dosage: 300 MG, QOW
     Route: 058
     Dates: start: 20210629
  2. EUCRISA [Concomitant]
     Active Substance: CRISABOROLE
  3. FLUTICASONE [Concomitant]
     Active Substance: FLUTICASONE
  4. KETOCONAZOLE [Concomitant]
     Active Substance: KETOCONAZOLE
  5. MUPIROCIN [Concomitant]
     Active Substance: MUPIROCIN
  6. PREDNISOLONE [Concomitant]
     Active Substance: PREDNISOLONE
  7. PREDNISONE [Concomitant]
     Active Substance: PREDNISONE
  8. TOBRAMYCIN [Concomitant]
     Active Substance: TOBRAMYCIN
  9. TRI FEMYNOR [Concomitant]
     Active Substance: ETHINYL ESTRADIOL\NORGESTIMATE
  10. TRIAMCINOLONE [Concomitant]
     Active Substance: TRIAMCINOLONE
  11. TRIAMCINOLONE [Concomitant]
     Active Substance: TRIAMCINOLONE
  12. DEXAMETHASONE\TOBRAMYCIN [Concomitant]
     Active Substance: DEXAMETHASONE\TOBRAMYCIN

REACTIONS (1)
  - Eye irritation [Unknown]
